FAERS Safety Report 7256039-4 (Version None)
Quarter: 2011Q1

REPORT INFORMATION
  Report Type: 
  Country: None (occurrence: None)
  Receive Date: 20110129
  Receipt Date: 20100524
  Transmission Date: 20110831
  Serious: No
  Sender: FDA-Public Use
  Company Number: US-ABBOTT-10P-163-0639291-00

PATIENT
  Sex: Female

DRUGS (11)
  1. KLOR-CON [Concomitant]
     Indication: ELECTROLYTE SUBSTITUTION THERAPY
  2. CENTRUM [Concomitant]
     Indication: VITAMIN SUPPLEMENTATION
  3. CRESTOR [Concomitant]
     Indication: HIGH DENSITY LIPOPROTEIN DECREASED
  4. HUMIRA [Suspect]
  5. METHOTREXATE [Concomitant]
     Indication: RHEUMATOID ARTHRITIS
  6. FUROSEMIDE [Concomitant]
     Indication: OEDEMA
     Dosage: INCREASED 80 MG TO 120 MG DAILY
  7. METHYLPREDNISOLONE ACETATE [Concomitant]
     Indication: RHEUMATOID ARTHRITIS
  8. LEUKOVORIN [Concomitant]
     Indication: VITAMIN SUPPLEMENTATION
  9. HUMIRA [Suspect]
     Indication: RHEUMATOID ARTHRITIS
     Dates: start: 20091102
  10. CALTRATE PLUS-D [Concomitant]
     Indication: VITAMIN SUPPLEMENTATION
  11. OMEPRAZOLE [Concomitant]
     Indication: DYSPEPSIA

REACTIONS (9)
  - ERYTHEMA [None]
  - CELLULITIS [None]
  - OROPHARYNGEAL PAIN [None]
  - PRURITUS [None]
  - OEDEMA PERIPHERAL [None]
  - DIARRHOEA [None]
  - NASOPHARYNGITIS [None]
  - GASTROENTERITIS VIRAL [None]
  - WEIGHT INCREASED [None]
